FAERS Safety Report 7073551-1 (Version None)
Quarter: 2010Q4

REPORT INFORMATION
  Report Type: 
  Country: None (occurrence: None)
  Receive Date: 20101029
  Receipt Date: 20100708
  Transmission Date: 20110411
  Serious: No
  Sender: FDA-Public Use
  Company Number: A0869234A

PATIENT
  Age: 66 Year
  Sex: Female

DRUGS (12)
  1. ADVAIR DISKUS 100/50 [Suspect]
     Indication: ASTHMA
     Dosage: 1PUFF TWICE PER DAY
     Route: 055
     Dates: start: 20010101
  2. SINGULAIR [Concomitant]
  3. METFORMIN [Concomitant]
  4. NEXIUM [Concomitant]
  5. VITAMINS [Concomitant]
  6. EYE DROPS(UNSPECIFIED) [Concomitant]
  7. CALCIUM [Concomitant]
  8. CLARITIN [Concomitant]
  9. MUCINEX [Concomitant]
  10. FISH OIL [Concomitant]
  11. LUTEIN [Concomitant]
  12. ALBUTEROL [Concomitant]

REACTIONS (4)
  - COUGH [None]
  - DYSPNOEA [None]
  - PEAK EXPIRATORY FLOW RATE DECREASED [None]
  - WHEEZING [None]
